FAERS Safety Report 19180921 (Version 1)
Quarter: 2021Q2

REPORT INFORMATION
  Report Type: Spontaneous
  Country: ES (occurrence: ES)
  Receive Date: 20210426
  Receipt Date: 20210426
  Transmission Date: 20210717
  Serious: Yes (Hospitalization)
  Sender: FDA-Public Use
  Company Number: ES-VERTEX PHARMACEUTICALS-2021-006488

PATIENT
  Sex: Male
  Weight: 39 kg

DRUGS (16)
  1. AUXINA E [Concomitant]
     Dosage: 1 DOSAGE FORM, QD (200 MG, 1 CAPSULE AT BREAKFAST)
  2. GLUCERNA [Concomitant]
     Active Substance: AMINO ACIDS\DEXTROSE\ELECTROLYTES NOS\SOYBEAN OIL\VITAMINS
     Dosage: ACCORDING TO NUTRITION 220 ML: 1 OVERNIGHT PER PEG
  3. SERETIDE [Concomitant]
     Active Substance: FLUTICASONE PROPIONATE\SALMETEROL XINAFOATE
     Dosage: 25/250, 2 PUFF WITH SPACER CHAMBER EVERY 12 HOURS
  4. ORKAMBI [Suspect]
     Active Substance: IVACAFTOR\LUMACAFTOR
     Indication: CYSTIC FIBROSIS
     Dosage: UNK
     Route: 048
  5. TERBASMIN [TERBUTALINE] [Concomitant]
     Dosage: 500 MCG TURBUHALER, 2 INHALATION BEFORE A NEBULIZATION WITH HYANEB
  6. AZITROMICINA [Concomitant]
     Active Substance: AZITHROMYCIN DIHYDRATE
     Dosage: 250 MG ON M, W,F
  7. COLFINAIR [Concomitant]
     Dosage: 2 MU NEBULIZED EACH 12 HOURS
  8. AUXINA A MASIVA [RETINOL] [Concomitant]
     Dosage: 1 DOSAGE FORM, QD (1 CAPSULE AT BREAKFAST )
  9. APIDRA [Concomitant]
     Active Substance: INSULIN GLULISINE
     Dosage: ACCORDING TO THE PATIENT^S OWN SETTINGS
  10. KREON 25000 [Concomitant]
     Active Substance: PANCRELIPASE
     Dosage: 8:00HR: 2,11:00HR: 1,14:00HR: 2,17:00HR: 1,20:00 HR: 2,
  11. HYANEB [Concomitant]
     Dosage: ONE NEBULISED AMPOULE EVERY 12 HR
  12. KONAKION [Concomitant]
     Active Substance: PHYTONADIONE
     Indication: VITAMIN K DEFICIENCY
     Dosage: UNK, QW
  13. SUPRADYN [MINERALS NOS;VITAMINS NOS] [Concomitant]
     Dosage: 1 DOSAGE FORM, QD (1 TABLET AT BREAKFAST)
  14. PULMOZYME [Concomitant]
     Active Substance: DORNASE ALFA
     Dosage: ONE NEBULISED AMPOULE WITH HIGH?FLOW NEBULISER EVERY 24 HOURS
  15. LEVEMIR [Concomitant]
     Active Substance: INSULIN DETEMIR
     Dosage: WITH NO CHANGES IN BREAKFAST AND DINNER
  16. ATROVENT [Concomitant]
     Active Substance: IPRATROPIUM BROMIDE
     Dosage: 20, 3?3?3 IN CHAMBER

REACTIONS (1)
  - Infective pulmonary exacerbation of cystic fibrosis [Unknown]

NARRATIVE: CASE EVENT DATE: 202001
